FAERS Safety Report 18532034 (Version 1)
Quarter: 2020Q4

REPORT INFORMATION
  Report Type: Spontaneous
  Country: US (occurrence: US)
  Receive Date: 20201123
  Receipt Date: 20201123
  Transmission Date: 20210114
  Serious: No
  Sender: FDA-Public Use
  Company Number: US-SA-2020SA326725

PATIENT

DRUGS (2)
  1. DUPIXENT [Suspect]
     Active Substance: DUPILUMAB
     Indication: SINUS POLYP
     Dosage: 300 MG, OTHER
     Route: 058
     Dates: start: 202010
  2. ASPIRINE [Suspect]
     Active Substance: ASPIRIN

REACTIONS (5)
  - Condition aggravated [Recovered/Resolved]
  - Pharyngeal swelling [Recovered/Resolved]
  - Nasal polyps [Recovered/Resolved]
  - Drug hypersensitivity [Recovered/Resolved]
  - Lymphadenopathy [Recovered/Resolved]

NARRATIVE: CASE EVENT DATE: 20201112
